FAERS Safety Report 18777730 (Version 3)
Quarter: 2021Q4

REPORT INFORMATION
  Report Type: Spontaneous
  Country: US (occurrence: US)
  Receive Date: 20210122
  Receipt Date: 20211217
  Transmission Date: 20220303
  Serious: No
  Sender: FDA-Public Use
  Company Number: US-PFIZER INC-2021039398

PATIENT
  Age: 76 Year
  Sex: Male
  Weight: 103.42 kg

DRUGS (7)
  1. VYNDAMAX [Suspect]
     Active Substance: TAFAMIDIS
     Indication: Amyloidosis
     Dosage: 61 MG
     Dates: start: 2020
  2. VYNDAMAX [Suspect]
     Active Substance: TAFAMIDIS
     Dosage: 80 MG
  3. ELIQUIS [Concomitant]
     Active Substance: APIXABAN
     Dosage: UNK
  4. SOTALOL [Concomitant]
     Active Substance: SOTALOL
     Dosage: 10 MG
  5. FAMOTIDINE [Concomitant]
     Active Substance: FAMOTIDINE
     Dosage: 10 MG, 1X/DAY
  6. ENTRESTO [Concomitant]
     Active Substance: SACUBITRIL\VALSARTAN
     Dosage: 24/26
  7. LASIX [Concomitant]
     Active Substance: FUROSEMIDE
     Dosage: 80 MG

REACTIONS (2)
  - Arthritis [Unknown]
  - Off label use [Unknown]
